FAERS Safety Report 5609620-X (Version None)
Quarter: 2008Q1

REPORT INFORMATION
  Report Type: 
  Country: None (occurrence: None)
  Receive Date: 20080131
  Receipt Date: 20080123
  Transmission Date: 20080703
  Serious: Yes (Death)
  Sender: FDA-Public Use
  Company Number: US-BOEHRINGER INGELHEIM GMBH, GERMANY-2008-BP-01435BP

PATIENT
  Age: 45 Year
  Sex: Male

DRUGS (12)
  1. APTIVUS/RITONAVIR CAPSULES [Suspect]
     Route: 048
  2. ABC/3TC [Suspect]
  3. T-20 [Suspect]
  4. SULFAMETHOXAZOLE AND TRIMETHOPRIM [Concomitant]
  5. FUROSEMIDE [Concomitant]
  6. ALDACTONE [Concomitant]
  7. CASPOFUNGIN [Concomitant]
  8. RAMIPRIL [Concomitant]
  9. CEFTAZIDINE [Concomitant]
  10. IMIPENEM [Concomitant]
  11. AMIKACIN [Concomitant]
  12. VANCOMYCIN [Concomitant]

REACTIONS (1)
  - LIVER DISORDER [None]
